FAERS Safety Report 17534675 (Version 5)
Quarter: 2021Q1

REPORT INFORMATION
  Report Type: Spontaneous
  Country: US (occurrence: US)
  Receive Date: 20200312
  Receipt Date: 20210223
  Transmission Date: 20210419
  Serious: No
  Sender: FDA-Public Use
  Company Number: US-AKCEA THERAPEUTICS-2019IS001474

PATIENT
  Age: 68 Year
  Sex: Male

DRUGS (4)
  1. TEGSEDI [Suspect]
     Active Substance: INOTERSEN SODIUM
     Indication: FAMILIAL AMYLOIDOSIS
     Route: 058
     Dates: start: 20190128
  2. DIFLUNISAL. [Concomitant]
     Active Substance: DIFLUNISAL
     Route: 065
     Dates: end: 20190321
  3. ISSD (INTEGRATED SYRINGE SAFETY DEVICE) [Suspect]
     Active Substance: DEVICE
  4. OMEPRAZOLE. [Concomitant]
     Active Substance: OMEPRAZOLE
     Route: 065

REACTIONS (11)
  - Renal disorder [Not Recovered/Not Resolved]
  - Bacterial test positive [Unknown]
  - Gingival bleeding [Recovered/Resolved]
  - Bleeding time prolonged [Recovered/Resolved]
  - Laboratory test abnormal [Recovered/Resolved]
  - Urine analysis abnormal [Unknown]
  - Protein urine present [Unknown]
  - Urine abnormality [Unknown]
  - Urine protein/creatinine ratio increased [Unknown]
  - Urinary casts [Unknown]
  - Wound [Recovered/Resolved]

NARRATIVE: CASE EVENT DATE: 2019
